FAERS Safety Report 10584106 (Version 1)
Quarter: 2014Q4

REPORT INFORMATION
  Report Type: Spontaneous
  Country: US (occurrence: None)
  Receive Date: 20141113
  Receipt Date: 20141113
  Transmission Date: 20150529
  Serious: Yes (Death)
  Sender: FDA-Public Use
  Company Number: None

PATIENT
  Age: 77 Year
  Sex: Female

DRUGS (15)
  1. PROGRAF [Suspect]
     Active Substance: TACROLIMUS\TACROLIMUS ANHYDROUS
     Indication: RENAL TRANSPLANT
     Dosage: 3MG  DAILY  ORALLY
     Route: 048
     Dates: start: 20080514, end: 20141111
  2. OSCAL [Concomitant]
     Active Substance: CALCIUM CARBONATE
  3. LANTUS [Concomitant]
     Active Substance: INSULIN GLARGINE
  4. HUMALOG [Concomitant]
     Active Substance: INSULIN LISPRO
  5. WARFARIN [Concomitant]
     Active Substance: WARFARIN
  6. CARTEOLOL SOL OPHTH [Concomitant]
  7. LIPITOR [Concomitant]
     Active Substance: ATORVASTATIN CALCIUM
  8. SINGULAIR [Concomitant]
     Active Substance: MONTELUKAST SODIUM
  9. MYCOPHENOLATE 250 MG TEVA [Suspect]
     Active Substance: MYCOPHENOLIC ACID
     Indication: RENAL TRANSPLANT
     Dosage: 250MG  TWICE A DAY  ORALLY
     Route: 048
     Dates: start: 20131116, end: 20141111
  10. SULFAMETHOXAZOLE AND TRIMETHOPRIM DOUBLE STRENGTH [Concomitant]
     Active Substance: SULFAMETHOXAZOLE\TRIMETHOPRIM
  11. LASIX [Concomitant]
     Active Substance: FUROSEMIDE
  12. LOPRESSOR [Concomitant]
     Active Substance: METOPROLOL TARTRATE
  13. METOPROLOL [Concomitant]
     Active Substance: METOPROLOL
  14. VITAMIN D [Concomitant]
     Active Substance: CHOLECALCIFEROL
  15. ISOSORBIDE DINITRATE. [Concomitant]
     Active Substance: ISOSORBIDE DINITRATE

REACTIONS (1)
  - Death [None]

NARRATIVE: CASE EVENT DATE: 20141111
